FAERS Safety Report 24948246 (Version 1)
Quarter: 2025Q1

REPORT INFORMATION
  Report Type: Spontaneous
  Country: KR (occurrence: KR)
  Receive Date: 20250210
  Receipt Date: 20250210
  Transmission Date: 20250409
  Serious: Yes (Other)
  Sender: RISING PHARMACEUTICALS
  Company Number: KR-RISINGPHARMA-KR-2025RISLIT00068

PATIENT
  Age: 5 Decade
  Sex: Male

DRUGS (2)
  1. DEXMEDETOMIDINE HYDROCHLORIDE [Suspect]
     Active Substance: DEXMEDETOMIDINE HYDROCHLORIDE
     Indication: Sedation
     Route: 065
  2. REMIFENTANIL [Concomitant]
     Active Substance: REMIFENTANIL
     Indication: Sedation
     Route: 065

REACTIONS (3)
  - Hypothermia [Recovered/Resolved]
  - Urine output increased [Recovered/Resolved]
  - Bradycardia [Recovered/Resolved]
